FAERS Safety Report 23597329 (Version 1)
Quarter: 2024Q1

REPORT INFORMATION
  Report Type: Spontaneous
  Country: US (occurrence: None)
  Receive Date: 20240305
  Receipt Date: 20240305
  Transmission Date: 20240410
  Serious: Yes (Hospitalization)
  Sender: FDA-Public Use
  Company Number: None

PATIENT
  Sex: Female

DRUGS (3)
  1. SILDENAFIL CITRATE [Suspect]
     Active Substance: SILDENAFIL CITRATE
     Indication: Pulmonary arterial hypertension
     Dosage: 20MG TID PO?
     Route: 048
     Dates: start: 202106
  2. AMBRISENTAN [Concomitant]
     Active Substance: AMBRISENTAN
  3. REMODULIN [Concomitant]

REACTIONS (10)
  - Chronic obstructive pulmonary disease [None]
  - Hypoxia [None]
  - Atelectasis [None]
  - Pleural effusion [None]
  - Productive cough [None]
  - Headache [None]
  - Dizziness [None]
  - Asthenia [None]
  - Confusional state [None]
  - Dyspnoea exertional [None]
